FAERS Safety Report 25252684 (Version 1)
Quarter: 2025Q2

REPORT INFORMATION
  Report Type: Report from Study
  Country: IT (occurrence: IT)
  Receive Date: 20250429
  Receipt Date: 20250429
  Transmission Date: 20250717
  Serious: Yes (Other)
  Sender: SK LIFE SCIENCE
  Company Number: IT-ACRAF-2025-037729

PATIENT

DRUGS (1)
  1. XCOPRI [Suspect]
     Active Substance: CENOBAMATE
     Indication: Epilepsy
     Dosage: 150 MILLIGRAM, DAILY
     Route: 065

REACTIONS (1)
  - Syncope [Unknown]
